FAERS Safety Report 5472114-9 (Version None)
Quarter: 2007Q3

REPORT INFORMATION
  Report Type: 
  Country: None (occurrence: None)
  Receive Date: 20070928
  Receipt Date: 20070919
  Transmission Date: 20080115
  Serious: Yes (Hospitalization, Other)
  Sender: FDA-Public Use
  Company Number: US-ABBOTT-07P-163-0417715-00

PATIENT
  Sex: Male
  Weight: 123 kg

DRUGS (6)
  1. ADVICOR [Suspect]
     Indication: DRUG USE FOR UNKNOWN INDICATION
     Dosage: 500/20 MG
     Route: 048
     Dates: start: 20070201, end: 20070525
  2. LEVOTHYROXINE SODIUM [Concomitant]
     Indication: DRUG USE FOR UNKNOWN INDICATION
     Route: 048
  3. METOPROLOL SUCCINATE [Concomitant]
     Indication: DRUG USE FOR UNKNOWN INDICATION
     Dosage: (HOLD IF SBP {100 OR HR {60
     Route: 048
  4. DIOVAN HCT [Concomitant]
     Indication: DRUG USE FOR UNKNOWN INDICATION
     Dosage: 80 MG/12.5 MG
     Route: 048
     Dates: end: 20070526
  5. PIOGLITAZONE [Concomitant]
     Indication: DRUG USE FOR UNKNOWN INDICATION
     Route: 048
  6. VALSARTAN [Concomitant]
     Indication: DRUG USE FOR UNKNOWN INDICATION
     Route: 048
     Dates: start: 20070527

REACTIONS (28)
  - ASTHENIA [None]
  - ATRIOVENTRICULAR BLOCK FIRST DEGREE [None]
  - BREATH SOUNDS ABNORMAL [None]
  - BURNING SENSATION [None]
  - CEREBRAL ATROPHY [None]
  - CEREBROVASCULAR ACCIDENT [None]
  - CONTUSION [None]
  - DIZZINESS [None]
  - EXCORIATION [None]
  - FALL [None]
  - FEELING HOT [None]
  - FIBRIN D DIMER INCREASED [None]
  - FLUSHING [None]
  - HYPERGLYCAEMIA [None]
  - HYPOTENSION [None]
  - JOINT RANGE OF MOTION DECREASED [None]
  - JOINT SPRAIN [None]
  - LOCAL SWELLING [None]
  - MALAISE [None]
  - NAUSEA [None]
  - NECK PAIN [None]
  - OEDEMA PERIPHERAL [None]
  - PSORIASIS [None]
  - RALES [None]
  - RENAL FAILURE CHRONIC [None]
  - SENSORY DISTURBANCE [None]
  - SINUS RHYTHM [None]
  - SYNCOPE [None]
